FAERS Safety Report 15105708 (Version 1)
Quarter: 2018Q3

REPORT INFORMATION
  Report Type: Report from Study
  Country: IT (occurrence: IT)
  Receive Date: 20180704
  Receipt Date: 20180704
  Transmission Date: 20181010
  Serious: Yes (Hospitalization)
  Sender: FDA-Public Use
  Company Number: IT-TEVA-2018-IT-919549

PATIENT
  Age: 71 Year
  Sex: Female

DRUGS (3)
  1. CIPROXIN 500?MG COMPRESSE RIVESTITE CON FILM [Suspect]
     Active Substance: CIPROFLOXACIN
     Indication: INFECTION
     Route: 048
     Dates: start: 20180418, end: 20180418
  2. OXICODONE ACCORD 5 MG COMPRESSE A RILASCIO PROLUNGATO [Suspect]
     Active Substance: OXYCODONE
     Indication: PAIN
     Dosage: EXTENDED RELEASE TABLETS
     Route: 048
     Dates: start: 20180418, end: 20180418
  3. MIRTAZAPINE. [Suspect]
     Active Substance: MIRTAZAPINE
     Indication: DEPRESSION
     Route: 048
     Dates: start: 20180418, end: 20180418

REACTIONS (2)
  - Miosis [Recovered/Resolved]
  - Loss of consciousness [Recovered/Resolved]

NARRATIVE: CASE EVENT DATE: 20180418
